FAERS Safety Report 22071071 (Version 1)
Quarter: 2023Q1

REPORT INFORMATION
  Report Type: Spontaneous
  Country: US (occurrence: None)
  Receive Date: 20230307
  Receipt Date: 20230307
  Transmission Date: 20230418
  Serious: No
  Sender: FDA-Public Use
  Company Number: None

PATIENT
  Sex: 0

DRUGS (1)
  1. GABAPENTIN [Suspect]
     Active Substance: GABAPENTIN

REACTIONS (5)
  - Headache [None]
  - Cardiac disorder [None]
  - Therapeutic product effect decreased [None]
  - Product formulation issue [None]
  - Product colour issue [None]
